FAERS Safety Report 11241515 (Version 1)
Quarter: 2015Q3

REPORT INFORMATION
  Report Type: Spontaneous
  Country: US (occurrence: US)
  Receive Date: 20150706
  Receipt Date: 20150706
  Transmission Date: 20151125
  Serious: No
  Sender: FDA-Public Use
  Company Number: US-DSJP-DSU-2014-113839

PATIENT
  Sex: Female

DRUGS (3)
  1. WELCHOL [Suspect]
     Active Substance: COLESEVELAM HYDROCHLORIDE
     Dosage: UNK
     Route: 048
     Dates: start: 201406
  2. STATIN [Concomitant]
     Active Substance: UNSPECIFIED INGREDIENT
     Indication: HYPERCHOLESTEROLAEMIA
     Dosage: UNK
  3. WELCHOL [Suspect]
     Active Substance: COLESEVELAM HYDROCHLORIDE
     Indication: HYPERCHOLESTEROLAEMIA
     Dosage: 1250 MG, BID
     Route: 048

REACTIONS (3)
  - Blood glucose increased [Unknown]
  - Blood glucose decreased [Unknown]
  - Drug administration error [Unknown]
